FAERS Safety Report 12089207 (Version 1)
Quarter: 2016Q1

REPORT INFORMATION
  Report Type: Spontaneous
  Country: US (occurrence: None)
  Receive Date: 20160217
  Receipt Date: 20160217
  Transmission Date: 20160526
  Serious: Yes (Life-Threatening, Hospitalization, Disabling, Other)
  Sender: FDA-Public Use
  Company Number: None

PATIENT
  Age: 43 Year
  Sex: Female
  Weight: 58.97 kg

DRUGS (14)
  1. GABAPENTIN. [Concomitant]
     Active Substance: GABAPENTIN
  2. REMERON [Suspect]
     Active Substance: MIRTAZAPINE
     Indication: PSYCHOTIC DISORDER
     Route: 048
     Dates: start: 20160113, end: 20160208
  3. EFFEXOR [Concomitant]
     Active Substance: VENLAFAXINE HYDROCHLORIDE
  4. LORAZEPAM. [Concomitant]
     Active Substance: LORAZEPAM
  5. MULTI-VITAMIN [Concomitant]
     Active Substance: .ALPHA.-TOCOPHEROL ACETATE, DL-\ASCORBIC ACID\CYANOCOBALAMIN\FLUORIDE ION\FOLIC ACID\NIACIN\PYRIDOXINE\RIBOFLAVIN\THIAMINE\VITAMIN A\VITAMIN D
  6. RISPERDAL [Suspect]
     Active Substance: RISPERIDONE
     Indication: PSYCHOTIC DISORDER
     Dosage: AT NIGHT LIQUID
     Dates: start: 20160113, end: 20160208
  7. ZIPRASIDONE. [Concomitant]
     Active Substance: ZIPRASIDONE
  8. AMITIZA [Concomitant]
     Active Substance: LUBIPROSTONE
  9. FIORICET WITH CODEINE [Concomitant]
     Active Substance: ACETAMINOPHEN\BUTALBITAL\CAFFEINE\CODEINE PHOSPHATE
  10. VITAMIN D [Concomitant]
     Active Substance: CHOLECALCIFEROL
  11. MINIVELLE [Concomitant]
     Active Substance: ESTRADIOL
  12. ACCUPUNCTURE [Concomitant]
  13. WATER. [Concomitant]
     Active Substance: WATER
  14. NATURAL HEALTH REMEDIES [Concomitant]

REACTIONS (14)
  - Insomnia [None]
  - Hypertension [None]
  - Dry mouth [None]
  - Vomiting [None]
  - Suicidal ideation [None]
  - Dyspnoea [None]
  - Palpitations [None]
  - Syncope [None]
  - Pallor [None]
  - Dry eye [None]
  - Nausea [None]
  - Dizziness [None]
  - Hypersensitivity [None]
  - Swollen tongue [None]

NARRATIVE: CASE EVENT DATE: 20160201
